FAERS Safety Report 12250966 (Version 2)
Quarter: 2017Q1

REPORT INFORMATION
  Report Type: Report from Study
  Country: CA (occurrence: CA)
  Receive Date: 20160409
  Receipt Date: 20170328
  Transmission Date: 20170428
  Serious: Yes (Other)
  Sender: FDA-Public Use
  Company Number: CA-AMGEN-CANSP2016043425

PATIENT
  Age: 80 Year
  Sex: Female

DRUGS (2)
  1. LOVASTATIN. [Concomitant]
     Active Substance: LOVASTATIN
     Dosage: 20 MG, UNK
  2. PROLIA [Suspect]
     Active Substance: DENOSUMAB
     Indication: OSTEOPOROSIS
     Dosage: UNK
     Route: 065
     Dates: start: 20150526

REACTIONS (11)
  - Constipation [Not Recovered/Not Resolved]
  - Saliva altered [Not Recovered/Not Resolved]
  - Generalised erythema [Not Recovered/Not Resolved]
  - Pruritus generalised [Not Recovered/Not Resolved]
  - Urinary retention [Not Recovered/Not Resolved]
  - Hyperhidrosis [Not Recovered/Not Resolved]
  - Blister [Not Recovered/Not Resolved]
  - Spinal disorder [Unknown]
  - Chondropathy [Unknown]
  - Mucous membrane disorder [Unknown]
  - Tendon pain [Unknown]

NARRATIVE: CASE EVENT DATE: 201602
